FAERS Safety Report 24277210 (Version 4)
Quarter: 2025Q4

REPORT INFORMATION
  Report Type: Spontaneous
  Country: JP (occurrence: JP)
  Receive Date: 20240903
  Receipt Date: 20251125
  Transmission Date: 20260118
  Serious: Yes (Other)
  Sender: BRISTOL-MYERS SQUIBB COMPANY
  Company Number: JP-ONO-2024JP013167

PATIENT
  Age: 73 Year
  Sex: Male
  Weight: 51.7 kg

DRUGS (23)
  1. OPDIVO [Suspect]
     Active Substance: NIVOLUMAB
     Indication: Gastric cancer
     Route: 041
     Dates: start: 20230223, end: 20230502
  2. OXALIPLATIN [Suspect]
     Active Substance: OXALIPLATIN
     Indication: Gastric cancer
  3. OXALIPLATIN [Suspect]
     Active Substance: OXALIPLATIN
     Dates: start: 20230313, end: 20230514
  4. PREDONINE [Suspect]
     Active Substance: PREDNISOLONE
     Indication: Interstitial lung disease
     Dates: start: 20230706, end: 20230719
  5. PREDONINE [Suspect]
     Active Substance: PREDNISOLONE
     Dates: start: 20230720, end: 20230807
  6. PREDONINE [Suspect]
     Active Substance: PREDNISOLONE
     Dates: start: 20230808, end: 20230821
  7. PREDONINE [Suspect]
     Active Substance: PREDNISOLONE
     Dates: start: 20230822, end: 20230904
  8. PREDONINE [Suspect]
     Active Substance: PREDNISOLONE
     Dates: start: 20230905, end: 20230918
  9. PREDONINE [Suspect]
     Active Substance: PREDNISOLONE
     Dates: start: 20230919, end: 20231004
  10. PREDONINE [Suspect]
     Active Substance: PREDNISOLONE
     Dates: start: 20231005, end: 20231025
  11. PREDONINE [Suspect]
     Active Substance: PREDNISOLONE
     Dates: start: 20231026, end: 20231108
  12. PREDONINE [Suspect]
     Active Substance: PREDNISOLONE
     Dates: start: 20231109, end: 20231129
  13. ANAMORELIN HYDROCHLORIDE [Suspect]
     Active Substance: ANAMORELIN HYDROCHLORIDE
     Indication: Cachexia
     Route: 048
  14. LEVOFOLINATE [Concomitant]
     Indication: Gastric cancer
     Dates: start: 20230223, end: 20230514
  15. FLUOROURACIL [Concomitant]
     Active Substance: FLUOROURACIL
     Indication: Gastric cancer
     Dosage: UNK
  16. FLUOROURACIL [Concomitant]
     Active Substance: FLUOROURACIL
     Dosage: CONTINUOUS ADMINISTRATION AT 2,900
  17. FLUOROURACIL [Concomitant]
     Active Substance: FLUOROURACIL
     Dates: start: 20230313, end: 20230514
  18. FLUOROURACIL [Concomitant]
     Active Substance: FLUOROURACIL
     Dosage: CONTINUOUS ADMINISTRATION AT 3,650
     Dates: start: 20230313, end: 20230514
  19. NEXIUM [Concomitant]
     Active Substance: ESOMEPRAZOLE MAGNESIUM
     Indication: Cancer pain
     Route: 048
  20. CALONAL [Concomitant]
     Active Substance: ACETAMINOPHEN
     Indication: Cancer pain
     Route: 048
  21. CELECOXIB [Concomitant]
     Active Substance: CELECOXIB
     Indication: Product used for unknown indication
     Route: 048
  22. AZILSARTAN KAMEDOXOMIL [Concomitant]
     Active Substance: AZILSARTAN KAMEDOXOMIL
     Indication: Product used for unknown indication
     Route: 048
  23. AMLODIPINE [Concomitant]
     Active Substance: AMLODIPINE BESYLATE
     Indication: Product used for unknown indication
     Route: 048

REACTIONS (3)
  - Interstitial lung disease [Recovering/Resolving]
  - Compression fracture [Unknown]
  - Organising pneumonia [Unknown]

NARRATIVE: CASE EVENT DATE: 20230505
